FAERS Safety Report 6665675-5 (Version None)
Quarter: 2010Q2

REPORT INFORMATION
  Report Type: 
  Country: None (occurrence: None)
  Receive Date: 20100402
  Receipt Date: 20100322
  Transmission Date: 20101027
  Serious: Yes (Other)
  Sender: FDA-Public Use
  Company Number: US-PFIZER INC-2010037191

PATIENT
  Sex: Female

DRUGS (2)
  1. XANAX [Suspect]
     Indication: POST-TRAUMATIC STRESS DISORDER
     Dosage: UNK
  2. ALPRAZOLAM [Suspect]
     Dosage: UNK

REACTIONS (8)
  - CARDIAC DISORDER [None]
  - CARDIOMEGALY [None]
  - CHEST PAIN [None]
  - DRUG INEFFECTIVE [None]
  - LUNG DISORDER [None]
  - PRODUCT COMMINGLING [None]
  - PRODUCT QUALITY ISSUE [None]
  - WEIGHT INCREASED [None]
